FAERS Safety Report 20998802 (Version 2)
Quarter: 2022Q3

REPORT INFORMATION
  Report Type: Report from Study
  Country: US (occurrence: US)
  Receive Date: 20220623
  Receipt Date: 20220801
  Transmission Date: 20221026
  Serious: Yes (Other)
  Sender: FDA-Public Use
  Company Number: US-OTSUKA-2022_032820

PATIENT

DRUGS (1)
  1. TOLVAPTAN [Suspect]
     Active Substance: TOLVAPTAN
     Indication: Congenital cystic kidney disease
     Dosage: UNK
     Route: 065
     Dates: start: 20190912

REACTIONS (1)
  - Renal impairment [Recovering/Resolving]

NARRATIVE: CASE EVENT DATE: 20220725
